FAERS Safety Report 5475259-2 (Version None)
Quarter: 2007Q4

REPORT INFORMATION
  Report Type: 
  Country: None (occurrence: None)
  Receive Date: 20071002
  Receipt Date: 20070920
  Transmission Date: 20080405
  Serious: Yes (Other)
  Sender: FDA-Public Use
  Company Number: US-PFIZER INC-2007080774

PATIENT
  Sex: Female
  Weight: 59 kg

DRUGS (6)
  1. CHANTIX [Suspect]
     Indication: EX-SMOKER
     Route: 048
     Dates: start: 20061101, end: 20070201
  2. ZOLOFT [Suspect]
     Indication: DEPRESSION
  3. XANAX [Suspect]
  4. OTHER HYPNOTICS AND SEDATIVES [Suspect]
     Indication: DEPRESSION
  5. ANTIDEPRESSANTS [Suspect]
     Indication: DEPRESSION
  6. CHLORAL HYDRATE [Suspect]
     Indication: INSOMNIA

REACTIONS (14)
  - CONDITION AGGRAVATED [None]
  - DEPRESSED MOOD [None]
  - DRUG INEFFECTIVE [None]
  - DRUG WITHDRAWAL SYNDROME [None]
  - ERUCTATION [None]
  - FEELING COLD [None]
  - FEELING HOT [None]
  - GOITRE [None]
  - HYPERHIDROSIS [None]
  - HYPOTHYROIDISM [None]
  - MENTAL IMPAIRMENT [None]
  - NAUSEA [None]
  - SLEEP DISORDER [None]
  - TREMOR [None]
